FAERS Safety Report 8954114 (Version 5)
Quarter: 2013Q1

REPORT INFORMATION
  Report Type: Report from Study
  Country: US (occurrence: US)
  Receive Date: 20121207
  Receipt Date: 20130308
  Transmission Date: 20140127
  Serious: Yes (Hospitalization)
  Sender: FDA-Public Use
  Company Number: US-JNJFOC-20121200424

PATIENT
  Age: 59 Year
  Sex: Female
  Weight: 99.79 kg

DRUGS (19)
  1. GOLIMUMAB [Suspect]
     Indication: PSORIASIS
     Route: 065
     Dates: start: 20121022
  2. GOLIMUMAB [Suspect]
     Indication: PSORIASIS
     Route: 065
     Dates: start: 20120412
  3. GOLIMUMAB [Suspect]
     Indication: PSORIASIS
     Route: 065
     Dates: start: 20120514
  4. GOLIMUMAB [Suspect]
     Indication: PSORIASIS
     Route: 065
     Dates: start: 20120814
  5. GOLIMUMAB [Suspect]
     Indication: PSORIASIS
     Route: 065
     Dates: start: 20120914
  6. GOLIMUMAB [Suspect]
     Indication: ARTHRITIS
     Route: 065
     Dates: start: 20121022
  7. GOLIMUMAB [Suspect]
     Indication: ARTHRITIS
     Route: 065
     Dates: start: 20120412
  8. GOLIMUMAB [Suspect]
     Indication: ARTHRITIS
     Route: 065
     Dates: start: 20120514
  9. GOLIMUMAB [Suspect]
     Indication: ARTHRITIS
     Route: 065
     Dates: start: 20120814
  10. GOLIMUMAB [Suspect]
     Indication: ARTHRITIS
     Route: 065
     Dates: start: 20120914
  11. USTEKINUMAB [Suspect]
     Indication: PSORIASIS
     Dates: start: 20121127
  12. USTEKINUMAB [Suspect]
     Indication: PSORIASIS
     Dates: start: 20120829
  13. USTEKINUMAB [Suspect]
     Indication: PSORIASIS
     Dates: start: 20120514
  14. USTEKINUMAB [Suspect]
     Indication: PSORIASIS
     Dates: start: 20120412
  15. USTEKINUMAB [Suspect]
     Indication: ARTHRITIS
     Dates: start: 20121127
  16. USTEKINUMAB [Suspect]
     Indication: ARTHRITIS
     Dates: start: 20120829
  17. USTEKINUMAB [Suspect]
     Indication: ARTHRITIS
     Dates: start: 20120514
  18. USTEKINUMAB [Suspect]
     Indication: ARTHRITIS
     Dates: start: 20120412
  19. CORTICOSTEROIDS [Concomitant]

REACTIONS (3)
  - Fall [Recovered/Resolved]
  - Hypoglycaemia [Recovered/Resolved]
  - Urinary tract infection [Recovered/Resolved]
